FAERS Safety Report 5155217-8 (Version None)
Quarter: 2006Q4

REPORT INFORMATION
  Report Type: 
  Country: None (occurrence: None)
  Receive Date: 20061121
  Receipt Date: 20061108
  Transmission Date: 20070319
  Serious: Yes (Hospitalization)
  Sender: FDA-Public Use
  Company Number: PHBS2006JP17468

PATIENT
  Age: 76 Year
  Sex: Female

DRUGS (5)
  1. METOPIRONE [Suspect]
     Indication: CUSHING'S SYNDROME
     Dosage: 750 MG/DAY
     Route: 048
     Dates: start: 20060723, end: 20060802
  2. METOPIRONE [Suspect]
     Dosage: 250 MG/DAY
     Route: 048
     Dates: start: 20060805, end: 20060809
  3. DIOVAN [Concomitant]
     Dosage: 80 MG/DAY
     Route: 048
     Dates: start: 20060703
  4. LOCHOL [Concomitant]
     Dosage: 20 MG/DAY
     Route: 048
     Dates: start: 20060617
  5. CONIEL [Concomitant]
     Dosage: 4 MG/DAY
     Route: 048
     Dates: start: 20060616

REACTIONS (2)
  - HYPOXIA [None]
  - OXYGEN SATURATION DECREASED [None]
